FAERS Safety Report 18513191 (Version 1)
Quarter: 2020Q4

REPORT INFORMATION
  Report Type: Spontaneous
  Country: IT (occurrence: IT)
  Receive Date: 20201117
  Receipt Date: 20201117
  Transmission Date: 20210114
  Serious: Yes (Death)
  Sender: FDA-Public Use
  Company Number: IT-MYLANLABS-2020M1094929

PATIENT
  Age: 71 Year
  Sex: Male

DRUGS (2)
  1. BRUFEN [Suspect]
     Active Substance: IBUPROFEN
     Indication: PYREXIA
     Dosage: UNK
     Route: 048
  2. TACHIPIRINA [Suspect]
     Active Substance: ACETAMINOPHEN
     Indication: PYREXIA
     Dosage: UNK
     Route: 048

REACTIONS (1)
  - Hypothermia [Fatal]

NARRATIVE: CASE EVENT DATE: 20201110
